FAERS Safety Report 21876717 (Version 1)
Quarter: 2023Q1

REPORT INFORMATION
  Report Type: Report from Study
  Country: US (occurrence: US)
  Receive Date: 20230118
  Receipt Date: 20230118
  Transmission Date: 20230417
  Serious: No
  Sender: FDA-Public Use
  Company Number: US-ABBVIE-4236505

PATIENT
  Sex: Female

DRUGS (1)
  1. HUMIRA [Suspect]
     Active Substance: ADALIMUMAB
     Indication: Hidradenitis
     Route: 058

REACTIONS (6)
  - Tonsillar disorder [Recovering/Resolving]
  - Nephrolithiasis [Recovering/Resolving]
  - Illness [Recovering/Resolving]
  - Tonsillar hypertrophy [Recovering/Resolving]
  - Streptococcal infection [Recovering/Resolving]
  - Influenza [Recovering/Resolving]
